FAERS Safety Report 11316129 (Version 2)
Quarter: 2015Q3

REPORT INFORMATION
  Report Type: Spontaneous
  Country: DE (occurrence: DE)
  Receive Date: 20150728
  Receipt Date: 20150820
  Transmission Date: 20151125
  Serious: Yes (Hospitalization)
  Sender: FDA-Public Use
  Company Number: DE-BIOGENIDEC-2015BI103973

PATIENT
  Age: 41 Year
  Sex: Female

DRUGS (2)
  1. TYSABRI [Suspect]
     Active Substance: NATALIZUMAB
     Indication: MULTIPLE SCLEROSIS
     Route: 042
     Dates: start: 20150505
  2. TYSABRI [Suspect]
     Active Substance: NATALIZUMAB
     Indication: MULTIPLE SCLEROSIS
     Route: 042
     Dates: start: 20060629, end: 20150213

REACTIONS (4)
  - Multiple sclerosis relapse [Unknown]
  - Procedural intestinal perforation [Recovered/Resolved with Sequelae]
  - Bladder perforation [Recovered/Resolved with Sequelae]
  - Oophorectomy [Recovered/Resolved with Sequelae]

NARRATIVE: CASE EVENT DATE: 201503
